FAERS Safety Report 20701693 (Version 2)
Quarter: 2022Q2

REPORT INFORMATION
  Report Type: Spontaneous
  Country: US (occurrence: US)
  Receive Date: 20220412
  Receipt Date: 20220601
  Transmission Date: 20220721
  Serious: No
  Sender: FDA-Public Use
  Company Number: US-PFIZER INC-2021766772

PATIENT
  Age: 73 Year
  Sex: Female
  Weight: 104.33 kg

DRUGS (1)
  1. VYNDAMAX [Suspect]
     Active Substance: TAFAMIDIS
     Indication: Cardiac disorder
     Dosage: 61 MG, 1X/DAY (61MG CAPSULE ONCE A DAY BY MOUTH)
     Route: 048
     Dates: start: 202104

REACTIONS (4)
  - Pain in extremity [Unknown]
  - Gait disturbance [Unknown]
  - Nausea [Unknown]
  - Vomiting [Unknown]

NARRATIVE: CASE EVENT DATE: 20210621
